FAERS Safety Report 9326323 (Version 2)
Quarter: 2013Q2

REPORT INFORMATION
  Report Type: Spontaneous
  Country: ES (occurrence: ES)
  Receive Date: 20130604
  Receipt Date: 20130610
  Transmission Date: 20140414
  Serious: Yes (Hospitalization)
  Sender: FDA-Public Use
  Company Number: ES-MERCK-1305ESP013444

PATIENT
  Age: 59 Year
  Sex: Male
  Weight: 79 kg

DRUGS (8)
  1. SPIRONOLACTONE [Concomitant]
     Dosage: DAILY DOSE 25 MG
     Dates: start: 20120730, end: 20130204
  2. SPIRONOLACTONE [Concomitant]
     Dosage: DAILY DOSE 100 MG
     Dates: start: 20130204
  3. ACETAMINOPHEN [Concomitant]
     Dosage: DAILY DOSE 650 MG
     Dates: start: 20120524, end: 20130222
  4. PEGINTRON [Suspect]
     Indication: CHRONIC HEPATITIS C
     Dosage: PEN, 120 MICROGRAM, QW
     Route: 058
     Dates: start: 20120525, end: 20130222
  5. RIBAVIRIN [Suspect]
     Indication: CHRONIC HEPATITIS C
     Dosage: 600 MG, BID (3,0,3)
     Route: 048
     Dates: start: 20120525, end: 20121209
  6. RIBAVIRIN [Suspect]
     Dosage: 400 MG, BID (2,0,2)
     Route: 048
     Dates: start: 20121209, end: 20130204
  7. RIBAVIRIN [Suspect]
     Dosage: 200 MG (1,0,2)
     Route: 048
     Dates: start: 20130204, end: 20130222
  8. VICTRELIS [Suspect]
     Indication: CHRONIC HEPATITIS C
     Dosage: 800 MG, TID
     Route: 048
     Dates: start: 20120626, end: 20130222

REACTIONS (9)
  - Cardiac failure [Recovered/Resolved]
  - Pneumonitis [Recovered/Resolved]
  - Asthenia [Recovered/Resolved]
  - Productive cough [Recovered/Resolved]
  - Pyrexia [Recovered/Resolved]
  - Oedema [Recovered/Resolved]
  - Anaemia [Recovered/Resolved]
  - Cough [Recovered/Resolved]
  - Dyspnoea exertional [Recovered/Resolved]
